FAERS Safety Report 10045471 (Version 5)
Quarter: 2015Q1

REPORT INFORMATION
  Report Type: Spontaneous
  Country: US (occurrence: US)
  Receive Date: 20140328
  Receipt Date: 20150225
  Transmission Date: 20150720
  Serious: Yes (Hospitalization, Disabling, Other)
  Sender: FDA-Public Use
  Company Number: US-009507513-1403USA011500

PATIENT
  Sex: Male
  Weight: 94.33 kg

DRUGS (1)
  1. PROSCAR [Suspect]
     Active Substance: FINASTERIDE
     Indication: BENIGN PROSTATIC HYPERPLASIA
     Dosage: 5 MG, UNK
     Route: 048
     Dates: start: 20000727, end: 200209

REACTIONS (12)
  - Prostate cancer [Unknown]
  - Prostate cancer recurrent [Recovered/Resolved]
  - Sexual dysfunction [Not Recovered/Not Resolved]
  - Radical prostatectomy [Unknown]
  - Plantar fasciitis [Unknown]
  - Exostosis [Unknown]
  - Prostatic specific antigen increased [Recovered/Resolved]
  - Appendicectomy [Unknown]
  - Dysuria [Unknown]
  - Hot flush [Unknown]
  - Muscle spasms [Unknown]
  - Erectile dysfunction [Not Recovered/Not Resolved]

NARRATIVE: CASE EVENT DATE: 2000
